FAERS Safety Report 8981316 (Version 1)
Quarter: 2012Q4

REPORT INFORMATION
  Report Type: 
  Country: GB (occurrence: GB)
  Receive Date: 20121221
  Receipt Date: 20121221
  Transmission Date: 20130627
  Serious: Yes (Other)
  Sender: FDA-Public Use
  Company Number: GB-MYLANLABS-2012S1025554

PATIENT
  Age: 65 Year
  Sex: Male

DRUGS (5)
  1. OMEPRAZOLE [Suspect]
     Route: 042
     Dates: start: 20110406
  2. OMEPRAZOLE [Suspect]
     Route: 042
     Dates: start: 20110418
  3. TIGECYCLINE [Suspect]
     Indication: ABDOMINAL SEPSIS
     Route: 042
  4. GENTAMICIN [Concomitant]
     Indication: ABDOMINAL SEPSIS
     Route: 065
  5. FLUCONAZOLE [Concomitant]
     Indication: ABDOMINAL SEPSIS
     Route: 048

REACTIONS (1)
  - Pathogen resistance [Unknown]
